FAERS Safety Report 9887661 (Version 3)
Quarter: 2014Q1

REPORT INFORMATION
  Report Type: Spontaneous
  Country: MX (occurrence: MX)
  Receive Date: 20140211
  Receipt Date: 20140225
  Transmission Date: 20141002
  Serious: Yes (Death)
  Sender: FDA-Public Use
  Company Number: MX-SA-2014SA015629

PATIENT
  Age: 18 Month
  Sex: Female

DRUGS (1)
  1. CEREZYME [Suspect]
     Indication: GAUCHER^S DISEASE
     Route: 042
     Dates: start: 2013, end: 20140126

REACTIONS (2)
  - Asphyxia [Fatal]
  - Foreign body aspiration [Fatal]
